FAERS Safety Report 9686296 (Version 1)
Quarter: 2013Q4

REPORT INFORMATION
  Report Type: Spontaneous
  Country: US (occurrence: US)
  Receive Date: 20131113
  Receipt Date: 20131113
  Transmission Date: 20140711
  Serious: Yes (Hospitalization)
  Sender: FDA-Public Use
  Company Number: US-CUBIST PHARMACEUTICAL, INC.-2013CBST000609

PATIENT
  Sex: 0

DRUGS (2)
  1. CUBICIN [Suspect]
     Indication: INTRASPINAL ABSCESS
     Dosage: 10 ML, QD
     Route: 042
     Dates: end: 20130708
  2. CUBICIN [Suspect]
     Indication: STAPHYLOCOCCAL INFECTION
     Dosage: 600 MG, 10 ML
     Route: 042
     Dates: end: 20130708

REACTIONS (1)
  - Blood creatine phosphokinase increased [Unknown]
